FAERS Safety Report 4385616-3 (Version None)
Quarter: 2004Q2

REPORT INFORMATION
  Report Type: 
  Country: None (occurrence: None)
  Receive Date: 20040625
  Receipt Date: 20040625
  Transmission Date: 20050107
  Serious: Yes (Hospitalization)
  Sender: FDA-Public Use
  Company Number: None

PATIENT

DRUGS (2)
  1. METOPROLOL [Suspect]
     Dosage: 12.5MG PO BID
     Route: 048
  2. FELODIPINE [Suspect]
     Dosage: 10MG PO QD

REACTIONS (1)
  - BRADYCARDIA [None]
